FAERS Safety Report 9945666 (Version 1)
Quarter: 2014Q1

REPORT INFORMATION
  Report Type: Spontaneous
  Country: US (occurrence: US)
  Receive Date: 20140303
  Receipt Date: 20140303
  Transmission Date: 20141002
  Serious: No
  Sender: FDA-Public Use
  Company Number: US-AMGEN-USASP2013067669

PATIENT
  Age: 53 Year
  Sex: Female

DRUGS (16)
  1. ENBREL [Suspect]
     Indication: PRODUCT USED FOR UNKNOWN INDICATION
     Dosage: 50 MG, QWK
     Route: 058
  2. PREDNISONE [Concomitant]
     Dosage: 10 MG, UNK
  3. IRON [Concomitant]
     Dosage: 15 MG/ML, UNK
  4. ZOLOFT [Concomitant]
     Dosage: 100 MG, UNK
  5. LISINOPRIL [Concomitant]
     Dosage: 20 MG, UNK
  6. FOLIC ACID [Concomitant]
     Dosage: 20 MG, UNK
  7. CALCIUM +D                         /00944201/ [Concomitant]
     Dosage: UNK
  8. FISH OIL                           /00492901/ [Concomitant]
     Dosage: 1200 MG, UNK
  9. GLUCOSAMINE [Concomitant]
     Dosage: 1500 COM
  10. VITAMIN E                          /00110501/ [Concomitant]
     Dosage: 400 UNIT, UNK
  11. ABILIFY [Concomitant]
     Dosage: 10 MG, UNK
  12. CRESTOR [Concomitant]
     Dosage: 10 MG, UNK
  13. ATENOLOL [Concomitant]
     Dosage: 25 MG, UNK
  14. OXCARBAZEPINE [Concomitant]
     Dosage: 150 MG, UNK
  15. METHOTREXATE [Concomitant]
     Dosage: 2.5 MG, UNK
  16. MULTIVITAMINS, PLAIN [Concomitant]
     Dosage: UNK

REACTIONS (1)
  - Injection site pain [Unknown]
